FAERS Safety Report 7647116-4 (Version None)
Quarter: 2011Q3

REPORT INFORMATION
  Report Type: 
  Country: None (occurrence: None)
  Receive Date: 20110801
  Receipt Date: 20110721
  Transmission Date: 20111222
  Serious: Yes (Hospitalization)
  Sender: FDA-Public Use
  Company Number: US-SANOFI-AVENTIS-2011SA047721

PATIENT
  Age: 57 Year
  Sex: Female

DRUGS (8)
  1. FLUOROURACIL [Suspect]
     Route: 042
     Dates: start: 20100831
  2. OXALIPLATIN [Suspect]
     Dosage: FREQUENCY : 85 MG/M2 IV OVER 2 HOURS.
     Route: 042
     Dates: start: 20100831
  3. BLINDED THERAPY [Suspect]
     Route: 054
     Dates: start: 20100831
  4. LEUCOVORIN CALCIUM [Suspect]
     Route: 042
     Dates: start: 20100831
  5. ONDANSETRON [Concomitant]
  6. VITAMIN B6 [Concomitant]
  7. OXYCONTIN [Concomitant]
  8. LORTAB [Concomitant]

REACTIONS (3)
  - PAIN [None]
  - DYSPNOEA [None]
  - PLEURAL EFFUSION [None]
